FAERS Safety Report 25816329 (Version 2)
Quarter: 2025Q4

REPORT INFORMATION
  Report Type: Spontaneous
  Country: US (occurrence: US)
  Receive Date: 20250918
  Receipt Date: 20251107
  Transmission Date: 20260117
  Serious: No
  Sender: NOVARTIS
  Company Number: US-002147023-NVSC2025US140198

PATIENT
  Sex: Male

DRUGS (1)
  1. ILARIS [Suspect]
     Active Substance: CANAKINUMAB
     Indication: Gout
     Dosage: 300 MG, ONCE/SINGLE (ONE SINGLE DOSE)
     Route: 058

REACTIONS (2)
  - Therapeutic response decreased [Not Recovered/Not Resolved]
  - Gouty arthritis [Not Recovered/Not Resolved]
